FAERS Safety Report 9295341 (Version 1)
Quarter: 2013Q1

REPORT INFORMATION
  Report Type: Spontaneous
  Country: US (occurrence: None)
  Receive Date: 20121227
  Receipt Date: 20121227
  Transmission Date: 20140127
  Serious: No
  Sender: FDA-Public Use
  Company Number: PHEH2012US022132

PATIENT
  Age: 59 Year
  Sex: Female

DRUGS (7)
  1. AFINITOR [Suspect]
     Route: 048
  2. ZOMETA (ZOLEDRONATE) UNKNOWN [Suspect]
     Route: 042
  3. FEMARA [Suspect]
  4. VICODIN [Suspect]
  5. TRAMADOL [Suspect]
  6. LORAZEPAM [Suspect]
  7. ONDANSETRON [Suspect]

REACTIONS (6)
  - Blood pressure fluctuation [None]
  - Crying [None]
  - Dry skin [None]
  - Pyrexia [None]
  - Nausea [None]
  - Vomiting [None]
